FAERS Safety Report 25174609 (Version 1)
Quarter: 2025Q2

REPORT INFORMATION
  Report Type: Spontaneous
  Country: US (occurrence: US)
  Receive Date: 20250408
  Receipt Date: 20250408
  Transmission Date: 20250717
  Serious: No
  Sender: FERRING
  Company Number: US-FERRINGPH-2025FE00712

PATIENT
  Age: 65 Year
  Sex: Male
  Weight: 88.8 kg

DRUGS (23)
  1. FIRMAGON [Suspect]
     Active Substance: DEGARELIX ACETATE
     Indication: Hormone-dependent prostate cancer
     Dosage: 240 MG, MONTHLY
     Route: 058
     Dates: start: 20230404
  2. GALLIUM GA-68 GOZETOTIDE [Suspect]
     Active Substance: GALLIUM GA-68 GOZETOTIDE
     Indication: Hormone-dependent prostate cancer
     Dosage: 3.9 MCI, ONCE/SINGLE
     Route: 042
     Dates: start: 20230407, end: 20230407
  3. LUTETIUM LU-177 VIPIVOTIDE TETRAXETAN [Suspect]
     Active Substance: LUTETIUM LU-177 VIPIVOTIDE TETRAXETAN
     Indication: Hormone-dependent prostate cancer
     Dosage: 204.5 MCI, ONCE/SINGLE
     Route: 042
     Dates: start: 20240806
  4. LUTETIUM LU-177 VIPIVOTIDE TETRAXETAN [Suspect]
     Active Substance: LUTETIUM LU-177 VIPIVOTIDE TETRAXETAN
     Route: 042
     Dates: start: 20240917
  5. LUTETIUM LU-177 VIPIVOTIDE TETRAXETAN [Suspect]
     Active Substance: LUTETIUM LU-177 VIPIVOTIDE TETRAXETAN
     Route: 042
     Dates: start: 20241029
  6. LUTETIUM LU-177 VIPIVOTIDE TETRAXETAN [Suspect]
     Active Substance: LUTETIUM LU-177 VIPIVOTIDE TETRAXETAN
     Route: 042
     Dates: start: 20241207
  7. ZYTIGA [Suspect]
     Active Substance: ABIRATERONE ACETATE
     Indication: Hormone-dependent prostate cancer
     Dosage: 1000 MG, ONCE/SINGLE
     Route: 048
     Dates: start: 20230429
  8. LEUPROLIDE [Concomitant]
     Active Substance: LEUPROLIDE
     Dates: start: 20240314
  9. VENLAFAXINE HCL [Concomitant]
     Active Substance: VENLAFAXINE HYDROCHLORIDE
     Dates: start: 20170712
  10. CLONAZEPAM [Concomitant]
     Active Substance: CLONAZEPAM
     Dates: start: 20170731
  11. SULFASALAZINE [Concomitant]
     Active Substance: SULFASALAZINE
     Dates: start: 2019
  12. FOLIC ACID [Concomitant]
     Active Substance: FOLIC ACID
     Dates: start: 20200211
  13. METHOTREXATE [Concomitant]
     Active Substance: METHOTREXATE
     Dates: start: 20210606
  14. ROSUVASTATIN [Concomitant]
     Active Substance: ROSUVASTATIN
     Dates: start: 20210610
  15. VITAMIN B12 [Concomitant]
     Active Substance: CYANOCOBALAMIN
     Dates: start: 20210610
  16. DIFLUPREDNATE [Concomitant]
     Active Substance: DIFLUPREDNATE
     Dates: start: 2023
  17. BUPROPION [Concomitant]
     Active Substance: BUPROPION
     Dates: start: 20230326
  18. PREDNISONE [Concomitant]
     Active Substance: PREDNISONE
     Dates: start: 20230513
  19. CELECOXIB [Concomitant]
     Active Substance: CELECOXIB
     Dates: start: 20230516
  20. CALCIUM CITRATE [Concomitant]
     Active Substance: CALCIUM CITRATE
     Dates: start: 20230519
  21. AMLODIPINE [Concomitant]
     Active Substance: AMLODIPINE BESYLATE
     Dates: start: 20230921
  22. ASPIRIN [Concomitant]
     Active Substance: ASPIRIN
     Dates: start: 20240108
  23. VITAMIN D [Concomitant]
     Active Substance: VITAMIN D NOS
     Dates: start: 20230519

REACTIONS (1)
  - Fatigue [Not Recovered/Not Resolved]

NARRATIVE: CASE EVENT DATE: 20240807
